FAERS Safety Report 7128843-4 (Version None)
Quarter: 2010Q4

REPORT INFORMATION
  Report Type: 
  Country: None (occurrence: None)
  Receive Date: 20101112
  Receipt Date: 20101101
  Transmission Date: 20110411
  Serious: Yes (Death)
  Sender: FDA-Public Use
  Company Number: 2010MA004090

PATIENT
  Sex: Male

DRUGS (2)
  1. CARBAMAZEPINE [Suspect]
     Indication: CONVULSION
     Dosage: 1 GN; QD; PO
     Route: 048
  2. DEXTROPROPOXYPHENE NAPSILATE W/PARACETAMOL) [Suspect]
     Indication: PROCEDURAL PAIN
     Dosage: X1; PO
     Route: 048

REACTIONS (4)
  - ANTICONVULSANT DRUG LEVEL INCREASED [None]
  - DRUG TOXICITY [None]
  - MALAISE [None]
  - POTENTIATING DRUG INTERACTION [None]
